FAERS Safety Report 9592742 (Version 2)
Quarter: 2013Q4

REPORT INFORMATION
  Report Type: Spontaneous
  Country: US (occurrence: US)
  Receive Date: 20131004
  Receipt Date: 20131004
  Transmission Date: 20140711
  Serious: No
  Sender: FDA-Public Use
  Company Number: US-BAXTER-2013BAX004764

PATIENT
  Age: 59 Year
  Sex: Female

DRUGS (2)
  1. DIANEAL PD2 [Suspect]
     Indication: PERITONEAL DIALYSIS
     Dosage: FIRST CYCLE OF 2L FILL + SUBSEQUENT 3 CYCLES OF 1800CC FILL
     Route: 033
     Dates: start: 20121213
  2. EXTRANEAL [Suspect]
     Indication: PERITONEAL DIALYSIS
     Route: 033

REACTIONS (2)
  - Hernia [Not Recovered/Not Resolved]
  - Abdominal distension [Recovered/Resolved]
